FAERS Safety Report 23079746 (Version 4)
Quarter: 2024Q2

REPORT INFORMATION
  Report Type: Spontaneous
  Country: US (occurrence: US)
  Receive Date: 20231018
  Receipt Date: 20240418
  Transmission Date: 20240716
  Serious: Yes (Other)
  Sender: FDA-Public Use
  Company Number: US-LUNDBECK-DKLU3068981

PATIENT
  Age: 3 Year
  Sex: Female

DRUGS (5)
  1. SABRIL [Suspect]
     Active Substance: VIGABATRIN
     Indication: Tuberous sclerosis complex
     Route: 048
  2. SABRIL [Suspect]
     Active Substance: VIGABATRIN
     Indication: Seizure
     Route: 048
     Dates: end: 202309
  3. VIGABATRIN [Suspect]
     Active Substance: VIGABATRIN
     Indication: Tuberous sclerosis complex
     Route: 048
  4. VIGABATRIN [Suspect]
     Active Substance: VIGABATRIN
     Indication: Seizure
     Route: 048
  5. VIGABATRIN [Suspect]
     Active Substance: VIGABATRIN
     Route: 048

REACTIONS (11)
  - Drug withdrawal convulsions [Not Recovered/Not Resolved]
  - Gelastic seizure [Not Recovered/Not Resolved]
  - Multiple-drug resistance [Not Recovered/Not Resolved]
  - Therapeutic response decreased [Not Recovered/Not Resolved]
  - Decreased appetite [Not Recovered/Not Resolved]
  - Aggression [Not Recovered/Not Resolved]
  - Frustration tolerance decreased [Not Recovered/Not Resolved]
  - Insomnia [Not Recovered/Not Resolved]
  - Crying [Not Recovered/Not Resolved]
  - Decreased interest [Not Recovered/Not Resolved]
  - Product availability issue [Unknown]

NARRATIVE: CASE EVENT DATE: 20230901
